FAERS Safety Report 17366522 (Version 2)
Quarter: 2020Q1

REPORT INFORMATION
  Report Type: Spontaneous
  Country: US (occurrence: US)
  Receive Date: 20200204
  Receipt Date: 20200207
  Transmission Date: 20200409
  Serious: No
  Sender: FDA-Public Use
  Company Number: US-PFIZER INC-2020044501

PATIENT
  Age: 18 Year
  Sex: Male

DRUGS (1)
  1. XELJANZ [Suspect]
     Active Substance: TOFACITINIB CITRATE
     Indication: RHEUMATOID ARTHRITIS
     Dosage: 10 MG, TWICE DAILY
     Route: 048
     Dates: start: 201909

REACTIONS (4)
  - Off label use [Unknown]
  - Product dose omission [Unknown]
  - Weight increased [Unknown]
  - Therapeutic product effect incomplete [Unknown]
